FAERS Safety Report 15125438 (Version 2)
Quarter: 2018Q3

REPORT INFORMATION
  Report Type: Spontaneous
  Country: DE (occurrence: DE)
  Receive Date: 20180710
  Receipt Date: 20180822
  Transmission Date: 20181010
  Serious: Yes (Life-Threatening)
  Sender: FDA-Public Use
  Company Number: DE-MYLANLABS-2018M1048089

PATIENT
  Age: 77 Year
  Sex: Male
  Weight: 94 kg

DRUGS (1)
  1. FASTJEKT [Suspect]
     Active Substance: EPINEPHRINE
     Indication: PRODUCT USED FOR UNKNOWN INDICATION
     Dosage: 0.30 MG, UNK
     Route: 058
     Dates: start: 20180619, end: 20180619

REACTIONS (3)
  - Device failure [Unknown]
  - Incorrect dose administered [Unknown]
  - Anaphylactic shock [Recovered/Resolved]
